FAERS Safety Report 25604713 (Version 2)
Quarter: 2025Q3

REPORT INFORMATION
  Report Type: Report from Study
  Country: CO (occurrence: CO)
  Receive Date: 20250725
  Receipt Date: 20250801
  Transmission Date: 20251021
  Serious: Yes (Hospitalization)
  Sender: ROCHE
  Company Number: CO-002147023-NVSC2025CO088719

PATIENT
  Sex: Female
  Weight: 68 kg

DRUGS (2)
  1. XOLAIR [Suspect]
     Active Substance: OMALIZUMAB
     Indication: Asthma
     Dosage: 450 MG, QMO
     Route: 058
     Dates: start: 20190207
  2. XOLAIR [Suspect]
     Active Substance: OMALIZUMAB
     Dosage: 450 MG, QMO (LAST DOSE)
     Route: 058
     Dates: start: 20240607

REACTIONS (16)
  - Pain [Unknown]
  - Herpes zoster [Unknown]
  - Eye infection [Recovering/Resolving]
  - Facial paralysis [Not Recovered/Not Resolved]
  - Asthma [Unknown]
  - Dysphemia [Unknown]
  - Illness [Not Recovered/Not Resolved]
  - Asthmatic crisis [Unknown]
  - Nasal congestion [Unknown]
  - Underweight [Unknown]
  - Headache [Unknown]
  - General physical health deterioration [Recovering/Resolving]
  - Product supply issue [Unknown]
  - Inflammation [Recovered/Resolved]
  - Hemiplegia [Unknown]
  - Cerebrovascular accident [Unknown]
